FAERS Safety Report 5771290-8 (Version None)
Quarter: 2008Q2

REPORT INFORMATION
  Report Type: 
  Country: None (occurrence: None)
  Receive Date: 20080612
  Receipt Date: 20080612
  Transmission Date: 20081010
  Serious: No
  Sender: FDA-Public Use
  Company Number: None

PATIENT

DRUGS (5)
  1. FLUTICASONE PROPIONATE [Suspect]
  2. FLUTICASONE PROPIONATE [Suspect]
  3. FLUTICASONE PROPIONATE [Suspect]
  4. FLUTICASONE PROPIONATE [Suspect]
  5. FLUTICASONE PROPIONATE [Suspect]

REACTIONS (1)
  - PHARMACEUTICAL PRODUCT COMPLAINT [None]
